FAERS Safety Report 25776339 (Version 1)
Quarter: 2025Q3

REPORT INFORMATION
  Report Type: Spontaneous
  Country: US (occurrence: US)
  Receive Date: 20250909
  Receipt Date: 20250909
  Transmission Date: 20251021
  Serious: No
  Sender: DOMPE FARMACEUTICI
  Company Number: US-FARMAPROD-202502-0585

PATIENT
  Sex: Female
  Weight: 63.5 kg

DRUGS (13)
  1. OXERVATE [Suspect]
     Active Substance: CENEGERMIN-BKBJ
     Indication: Neurotrophic keratopathy
     Route: 047
     Dates: start: 20250109
  2. BROMELAINS [Concomitant]
     Active Substance: BROMELAINS
  3. MULTI-VITE [Concomitant]
  4. LYSINE [Concomitant]
     Active Substance: LYSINE
  5. VITAMIN D2 [Concomitant]
     Active Substance: ERGOCALCIFEROL
  6. VITAMIN C [Concomitant]
     Active Substance: ASCORBIC ACID
  7. VITAMIN A [Concomitant]
     Active Substance: VITAMIN A
  8. VITAMIN B COMPLEX [Concomitant]
     Active Substance: CYANOCOBALAMIN\DEXPANTHENOL\NIACINAMIDE\PYRIDOXINE HYDROCHLORIDE\RIBOFLAVIN 5^-PHOSPHATE SODIUM\THIA
  9. MAGNESIUM [Concomitant]
     Active Substance: MAGNESIUM
  10. ZINC [Concomitant]
     Active Substance: ZINC
  11. LORAZEPAM [Concomitant]
     Active Substance: LORAZEPAM
  12. REFRESH TEARS PF [Concomitant]
     Active Substance: CARBOXYMETHYLCELLULOSE SODIUM\GLYCERIN
  13. RESTASIS [Concomitant]
     Active Substance: CYCLOSPORINE

REACTIONS (7)
  - Eye pain [Not Recovered/Not Resolved]
  - Dry eye [Not Recovered/Not Resolved]
  - Ocular hyperaemia [Not Recovered/Not Resolved]
  - Eye irritation [Not Recovered/Not Resolved]
  - Photophobia [Not Recovered/Not Resolved]
  - Eye swelling [Not Recovered/Not Resolved]
  - Product dose omission issue [Not Recovered/Not Resolved]
